FAERS Safety Report 10166448 (Version 1)
Quarter: 2014Q2

REPORT INFORMATION
  Report Type: Spontaneous
  Country: US (occurrence: None)
  Receive Date: 20140509
  Receipt Date: 20140509
  Transmission Date: 20141212
  Serious: Yes (Hospitalization)
  Sender: FDA-Public Use
  Company Number: None

PATIENT
  Age: 46 Year
  Sex: Female
  Weight: 96.6 kg

DRUGS (19)
  1. KENALOG [Suspect]
     Indication: ARTHRALGIA
     Dosage: 80MG ONE TIME INJECTION TO KNEE
     Dates: start: 20140210
  2. TRAZODONE [Concomitant]
  3. DILTIAZEM [Concomitant]
  4. FLUOXETINE [Concomitant]
  5. GLIMEPIRIDE [Concomitant]
  6. HYDROCODONE/APAP [Concomitant]
  7. HCTZ [Concomitant]
  8. TRADJENTA [Concomitant]
  9. LORAZEPAM [Concomitant]
  10. LISINOPRIL [Concomitant]
  11. METOPROLOL XL [Concomitant]
  12. NAPROXEN [Concomitant]
  13. PROTONIX [Concomitant]
  14. POTASSIUM CHLORIDE [Concomitant]
  15. SIMVASTATIN [Concomitant]
  16. BUPROPION [Concomitant]
  17. METFORMIN [Concomitant]
  18. TRAMADOL [Concomitant]
  19. APAP [Concomitant]

REACTIONS (2)
  - Chest pain [None]
  - Blood glucose increased [None]
